FAERS Safety Report 11012669 (Version 1)
Quarter: 2015Q2

REPORT INFORMATION
  Report Type: Spontaneous
  Country: US (occurrence: None)
  Receive Date: 20150409
  Receipt Date: 20150409
  Transmission Date: 20150821
  Serious: Yes (Other)
  Sender: FDA-Public Use
  Company Number: DEP_02622_2015

PATIENT
  Sex: Female
  Weight: 81.65 kg

DRUGS (6)
  1. GRALISE [Suspect]
     Active Substance: GABAPENTIN
     Indication: PAIN IN EXTREMITY
     Dosage: TITRATED UP TO 1200 MG, ONCE DAILY ORAL
     Route: 048
     Dates: start: 20150323
  2. GRALISE [Suspect]
     Active Substance: GABAPENTIN
     Indication: OFF LABEL USE
     Dosage: TITRATED UP TO 1200 MG, ONCE DAILY ORAL
     Route: 048
     Dates: start: 20150323
  3. MAXZIDE [Concomitant]
     Active Substance: HYDROCHLOROTHIAZIDE\TRIAMTERENE
  4. FELODIPINE. [Concomitant]
     Active Substance: FELODIPINE
  5. CYTOROIN [Concomitant]
  6. SYNTHROID [Concomitant]
     Active Substance: LEVOTHYROXINE SODIUM

REACTIONS (9)
  - Musculoskeletal stiffness [None]
  - Hypoacusis [None]
  - Injection site pain [None]
  - Insomnia [None]
  - Restlessness [None]
  - Pain [None]
  - Muscle rupture [None]
  - Mobility decreased [None]
  - Muscle tightness [None]

NARRATIVE: CASE EVENT DATE: 2015
